FAERS Safety Report 10193754 (Version 1)
Quarter: 2014Q2

REPORT INFORMATION
  Report Type: Spontaneous
  Country: US (occurrence: US)
  Receive Date: 20140524
  Receipt Date: 20140524
  Transmission Date: 20141212
  Serious: No
  Sender: FDA-Public Use
  Company Number: US-SA-2014SA002039

PATIENT
  Age: 50 Year
  Sex: Female
  Weight: 107.9 kg

DRUGS (3)
  1. LANTUS SOLOSTAR [Suspect]
     Indication: DIABETES MELLITUS
     Dosage: DOSE:50 UNIT(S)
     Route: 058
     Dates: start: 201306, end: 201311
  2. SOLOSTAR [Concomitant]
  3. LEVEMIR [Concomitant]

REACTIONS (5)
  - Vulvovaginal mycotic infection [Recovered/Resolved]
  - Urticaria [Recovered/Resolved]
  - Pruritus [Recovered/Resolved]
  - Injection site reaction [Recovered/Resolved]
  - Rash [Recovered/Resolved]
